FAERS Safety Report 13528702 (Version 2)
Quarter: 2021Q1

REPORT INFORMATION
  Report Type: Report from Study
  Country: US (occurrence: US)
  Receive Date: 20170509
  Receipt Date: 20210323
  Transmission Date: 20210419
  Serious: Yes (Other)
  Sender: FDA-Public Use
  Company Number: US-AMGEN-USACT2014055929

PATIENT
  Age: 61 Year
  Sex: Male
  Weight: 76.82 kg

DRUGS (2)
  1. IPILIMUMAB [Suspect]
     Active Substance: IPILIMUMAB
     Indication: MALIGNANT MELANOMA
     Dosage: 230 MILLIGRAM
     Route: 042
     Dates: start: 20140123, end: 20140326
  2. TALIMOGENE LAHERPAREPVEC [Suspect]
     Active Substance: TALIMOGENE LAHERPAREPVEC
     Indication: MALIGNANT MELANOMA
     Dosage: 3.6 MILLILITER
     Route: 065
     Dates: start: 20131218, end: 20140403

REACTIONS (1)
  - Granulomatous lymphadenitis [Recovered/Resolved]

NARRATIVE: CASE EVENT DATE: 20140528
